FAERS Safety Report 16778380 (Version 1)
Quarter: 2019Q3

REPORT INFORMATION
  Report Type: Spontaneous
  Country: FR (occurrence: FR)
  Receive Date: 20190906
  Receipt Date: 20190906
  Transmission Date: 20191005
  Serious: Yes (Hospitalization)
  Sender: FDA-Public Use
  Company Number: FR-BEH-2019106523

PATIENT
  Age: 26 Year
  Sex: Female
  Weight: 116 kg

DRUGS (2)
  1. METHYLPREDNISOLONE MYLAN [METHYLPREDNISOLONE HEMISUCCINATE] [Suspect]
     Active Substance: METHYLPREDNISOLONE HEMISUCCINATE
     Indication: MYOPATHY
     Dosage: 1 GRAM, QD
     Route: 041
     Dates: start: 20190807, end: 20190809
  2. PRIVIGEN [Suspect]
     Active Substance: HUMAN IMMUNOGLOBULIN G
     Indication: MYOPATHY
     Dosage: 2000 MILLIGRAM/KILOGRAM
     Route: 041
     Dates: start: 20190807, end: 20190810

REACTIONS (3)
  - Sinus bradycardia [Recovering/Resolving]
  - No adverse event [Unknown]
  - Product use in unapproved indication [Unknown]

NARRATIVE: CASE EVENT DATE: 20190809
